FAERS Safety Report 11064378 (Version 1)
Quarter: 2015Q2

REPORT INFORMATION
  Report Type: Spontaneous
  Country: FR (occurrence: FR)
  Receive Date: 20150424
  Receipt Date: 20150424
  Transmission Date: 20150821
  Serious: Yes (Hospitalization)
  Sender: FDA-Public Use
  Company Number: FR-PFIZER INC-2015136832

PATIENT
  Age: 50 Year
  Sex: Female

DRUGS (2)
  1. TRAMADOL [Interacting]
     Active Substance: TRAMADOL
     Dosage: 39 G, SINGLE
     Route: 048
  2. ALPRAZOLAM. [Suspect]
     Active Substance: ALPRAZOLAM
     Dosage: 15 G, SINGLE
     Route: 048

REACTIONS (13)
  - Toxicity to various agents [Recovering/Resolving]
  - Cyanosis [Recovering/Resolving]
  - Ventricular tachycardia [Recovering/Resolving]
  - Depressed level of consciousness [Recovering/Resolving]
  - Atrioventricular block [Recovered/Resolved]
  - Drug interaction [Recovering/Resolving]
  - Overdose [Recovering/Resolving]
  - Electrocardiogram QRS complex prolonged [Recovered/Resolved]
  - Respiratory arrest [Recovering/Resolving]
  - Haemodynamic instability [Recovering/Resolving]
  - Cardiogenic shock [Recovered/Resolved]
  - Mydriasis [Recovering/Resolving]
  - Seizure [Recovering/Resolving]
